FAERS Safety Report 18635353 (Version 1)
Quarter: 2020Q4

REPORT INFORMATION
  Report Type: Spontaneous
  Country: US (occurrence: US)
  Receive Date: 20201218
  Receipt Date: 20201218
  Transmission Date: 20210114
  Serious: No
  Sender: FDA-Public Use
  Company Number: US-THERAPEUTICSMD-2020TMD03849

PATIENT
  Age: 73 Year
  Sex: Female

DRUGS (6)
  1. IMVEXXY [Suspect]
     Active Substance: ESTRADIOL
     Indication: PROPHYLAXIS URINARY TRACT INFECTION
     Dosage: 10 ?G, AT BEDTIME
     Route: 067
     Dates: start: 20180813, end: 201907
  2. IMVEXXY [Suspect]
     Active Substance: ESTRADIOL
     Indication: VULVOVAGINAL DRYNESS
  3. IMVEXXY [Suspect]
     Active Substance: ESTRADIOL
     Indication: PROPHYLAXIS URINARY TRACT INFECTION
     Dosage: 4 ?G, 2X/WEEK AT BEDTIME
     Route: 067
     Dates: start: 201907
  4. IMVEXXY [Suspect]
     Active Substance: ESTRADIOL
     Indication: VULVOVAGINAL DRYNESS
  5. HIPREX [Concomitant]
     Active Substance: METHENAMINE HIPPURATE
     Dosage: 1 TABLETS, 1X/DAY
  6. HIPREX [Concomitant]
     Active Substance: METHENAMINE HIPPURATE
     Dosage: 1 TABLETS, 2X/DAY

REACTIONS (4)
  - Vaginal discharge [Not Recovered/Not Resolved]
  - Insomnia [Not Recovered/Not Resolved]
  - Vulvovaginal pruritus [Not Recovered/Not Resolved]
  - Off label use [Not Recovered/Not Resolved]

NARRATIVE: CASE EVENT DATE: 20180813
